FAERS Safety Report 6893150-1 (Version None)
Quarter: 2010Q3

REPORT INFORMATION
  Report Type: 
  Country: None (occurrence: None)
  Receive Date: 20100731
  Receipt Date: 20090608
  Transmission Date: 20110219
  Serious: Yes (Other)
  Sender: FDA-Public Use
  Company Number: US-PFIZER INC-2009203589

PATIENT
  Sex: Male
  Weight: 63.502 kg

DRUGS (1)
  1. NORVASC [Suspect]
     Indication: HYPERTENSION
     Dosage: 5 MG, 1X/DAY
     Dates: start: 20090318

REACTIONS (2)
  - PURPURA [None]
  - WHITE BLOOD CELL COUNT DECREASED [None]
